FAERS Safety Report 11852320 (Version 1)
Quarter: 2015Q4

REPORT INFORMATION
  Report Type: Spontaneous
  Country: US (occurrence: US)
  Receive Date: 20151218
  Receipt Date: 20151218
  Transmission Date: 20160305
  Serious: Yes (Hospitalization)
  Sender: FDA-Public Use
  Company Number: US-LPDUSPRD-20151015

PATIENT
  Age: 41 Year
  Sex: Female

DRUGS (3)
  1. TENOFOVIR [Suspect]
     Active Substance: TENOFOVIR
     Dosage: DOSE UNKNOWN
     Route: 065
  2. ZIDOVUDINE INJECTION (0517-0775-10) [Suspect]
     Active Substance: ZIDOVUDINE
     Dosage: DOSE UNKNOWN
     Route: 065
  3. LAMIVUDINE. [Suspect]
     Active Substance: LAMIVUDINE
     Dosage: DOSE UNKNOWN
     Route: 065

REACTIONS (1)
  - Acute hepatic failure [Unknown]
